FAERS Safety Report 9564172 (Version 1)
Quarter: 2013Q3

REPORT INFORMATION
  Report Type: Spontaneous
  Country: US (occurrence: US)
  Receive Date: 20130930
  Receipt Date: 20130930
  Transmission Date: 20140515
  Serious: Yes (Other)
  Sender: FDA-Public Use
  Company Number: US-AMGEN-USASP2013067843

PATIENT
  Age: 61 Year
  Sex: Female

DRUGS (2)
  1. ENBREL [Suspect]
     Indication: MIXED CONNECTIVE TISSUE DISEASE
     Dosage: 50 MG WEEKLY
     Route: 065
     Dates: start: 20130828
  2. METHOTREXATE [Concomitant]
     Dosage: 20 MG, WEEKLY ON FOR ABOUT 3 YEARS
     Route: 048

REACTIONS (1)
  - Urinary tract infection [Recovered/Resolved]
